FAERS Safety Report 6084086-7 (Version None)
Quarter: 2009Q1

REPORT INFORMATION
  Report Type: 
  Country: None (occurrence: None)
  Receive Date: 20090217
  Receipt Date: 20090217
  Transmission Date: 20090719
  Serious: Yes (Other)
  Sender: FDA-Public Use
  Company Number: None

PATIENT
  Age: 54 Year
  Sex: Male
  Weight: 79.8331 kg

DRUGS (2)
  1. METROGEL [Suspect]
     Indication: ROSACEA
     Dosage: APPLY TO FACE DAILY
     Dates: start: 20090212, end: 20090213
  2. SODIUM SULFACETAMIDE [Suspect]
     Indication: ROSACEA
     Dosage: WASH FACE DAILY
     Dates: start: 20090212, end: 20090213

REACTIONS (5)
  - BODY TEMPERATURE INCREASED [None]
  - CHILLS [None]
  - FEELING ABNORMAL [None]
  - MALAISE [None]
  - MUSCLE CONTRACTIONS INVOLUNTARY [None]
